FAERS Safety Report 8956055 (Version 1)
Quarter: 2012Q4

REPORT INFORMATION
  Report Type: Report from Study
  Country: DE (occurrence: FR)
  Receive Date: 20121210
  Receipt Date: 20121210
  Transmission Date: 20130627
  Serious: Yes (Hospitalization)
  Sender: FDA-Public Use
  Company Number: FR-BRISTOL-MYERS SQUIBB COMPANY-17096181

PATIENT
  Age: 43 Year
  Sex: Male

DRUGS (5)
  1. CETUXIMAB [Suspect]
     Indication: COLORECTAL CANCER METASTATIC
     Dosage: Recent dose-28Mar12
     Dates: start: 20111110, end: 20120328
  2. 5-FLUOROURACIL [Suspect]
     Indication: COLORECTAL CANCER METASTATIC
     Dosage: 10Nov11-28mar12 750mg, 4520mg 10Nov11-29mar12
     Route: 040
     Dates: start: 20111110, end: 20120329
  3. FOLINIC ACID [Suspect]
     Indication: COLORECTAL CANCER METASTATIC
     Dates: start: 20111110, end: 20120328
  4. IRINOTECAN HCL [Suspect]
     Indication: COLORECTAL CANCER METASTATIC
     Dates: start: 20111110, end: 20120328
  5. OXALIPLATIN [Suspect]
     Indication: COLORECTAL CANCER METASTATIC
     Dates: start: 20111110, end: 20120328

REACTIONS (2)
  - Stomatitis [Recovered/Resolved]
  - Dysphagia [Recovered/Resolved]
